FAERS Safety Report 4299221-0 (Version None)
Quarter: 2004Q1

REPORT INFORMATION
  Report Type: 
  Country: None (occurrence: None)
  Receive Date: 20040217
  Receipt Date: 20040203
  Transmission Date: 20041129
  Serious: Yes (Disabling)
  Sender: FDA-Public Use
  Company Number: GB-JNJFOC-20040200706

PATIENT
  Age: 40 Year
  Sex: Female

DRUGS (10)
  1. REMICADE [Suspect]
     Indication: RHEUMATOID ARTHRITIS
     Dosage: 200 MG INTRAVENOUS
     Route: 042
     Dates: start: 20010924
  2. LOPERAMIDE (LOPERAMIDE HYDROCHLORIDE) [Concomitant]
  3. TRAMADOL (TRAMADOL HYDROCHLORIDE) [Concomitant]
  4. DICLOFENAC [Concomitant]
  5. FOLIC ACID [Concomitant]
  6. METHOTREXATE [Concomitant]
  7. CO-CODAMOL (PANADEINE CO) [Concomitant]
  8. PREDNISOLONE [Concomitant]
  9. RANITIDINE [Concomitant]
  10. FERROUS SULFATE TAB [Concomitant]

REACTIONS (3)
  - CHEST PAIN [None]
  - DYSPNOEA [None]
  - PLEUROPERICARDITIS [None]
